FAERS Safety Report 7052269-5 (Version None)
Quarter: 2010Q4

REPORT INFORMATION
  Report Type: 
  Country: None (occurrence: None)
  Receive Date: 20101019
  Receipt Date: 20101011
  Transmission Date: 20110411
  Serious: Yes (Hospitalization)
  Sender: FDA-Public Use
  Company Number: US-ABBOTT-10P-163-0677292-00

PATIENT
  Sex: Female
  Weight: 55.388 kg

DRUGS (14)
  1. HUMIRA [Suspect]
     Indication: RHEUMATOID ARTHRITIS
     Dates: start: 20060101, end: 20100101
  2. HUMIRA [Suspect]
     Dates: start: 20100401
  3. PREDNISONE [Concomitant]
     Indication: RHEUMATOID ARTHRITIS
  4. CYMBALTA [Concomitant]
     Indication: DEPRESSION
  5. METOPROLOL [Concomitant]
     Indication: HYPERTENSION
  6. ZESTRIL [Concomitant]
     Indication: HYPERTENSION
  7. DARVOCET-N 100 [Concomitant]
     Indication: ARTHRALGIA
  8. NEURONTIN [Concomitant]
     Indication: ARTHRALGIA
  9. LIPITOR [Concomitant]
     Indication: BLOOD CHOLESTEROL INCREASED
  10. VITAMIN B [Concomitant]
     Indication: VITAMIN SUPPLEMENTATION
  11. TRAMADOL HCL [Concomitant]
     Indication: ARTHRALGIA
  12. PREDNISOLONE [Concomitant]
     Indication: IRITIS
     Route: 047
  13. CALCIUM [Concomitant]
     Indication: MINERAL SUPPLEMENTATION
  14. ZINC [Concomitant]
     Indication: MINERAL SUPPLEMENTATION

REACTIONS (4)
  - FALL [None]
  - MYOCARDIAL INFARCTION [None]
  - SKIN LESION [None]
  - UPPER LIMB FRACTURE [None]
